FAERS Safety Report 9892771 (Version 2)
Quarter: 2014Q1

REPORT INFORMATION
  Report Type: Spontaneous
  Country: CH (occurrence: CH)
  Receive Date: 20140212
  Receipt Date: 20140306
  Transmission Date: 20141002
  Serious: Yes (Other)
  Sender: FDA-Public Use
  Company Number: CH-ROCHE-1347826

PATIENT
  Age: 10 Year
  Sex: 0

DRUGS (4)
  1. XOLAIR [Suspect]
     Indication: CYSTIC FIBROSIS
     Route: 058
     Dates: start: 201103
  2. ITRACONAZOLE [Concomitant]
  3. PREDNISONE [Concomitant]
  4. ERGOCALCIFEROL [Concomitant]

REACTIONS (2)
  - Bronchopulmonary aspergillosis allergic [Unknown]
  - Off label use [Unknown]
